FAERS Safety Report 8339616-9 (Version None)
Quarter: 2012Q2

REPORT INFORMATION
  Report Type: 
  Country: None (occurrence: None)
  Receive Date: 20120507
  Receipt Date: 20120427
  Transmission Date: 20120825
  Serious: Yes (Hospitalization)
  Sender: FDA-Public Use
  Company Number: US-BAYER-2011-074983

PATIENT
  Age: 21 Year
  Sex: Female
  Weight: 81 kg

DRUGS (2)
  1. IBUPROFEN TABLETS [Concomitant]
     Route: 048
  2. YASMIN [Suspect]
     Dosage: UNK
     Dates: start: 20060801, end: 20081101

REACTIONS (3)
  - INJURY [None]
  - GALLBLADDER INJURY [None]
  - PANCREATITIS [None]
